FAERS Safety Report 20699567 (Version 2)
Quarter: 2022Q2

REPORT INFORMATION
  Report Type: Spontaneous
  Country: AU (occurrence: AU)
  Receive Date: 20220412
  Receipt Date: 20220414
  Transmission Date: 20220720
  Serious: No
  Sender: FDA-Public Use
  Company Number: AU-MYLANLABS-2022M1025669

PATIENT
  Sex: Female

DRUGS (3)
  1. ALBUTEROL SULFATE [Suspect]
     Active Substance: ALBUTEROL SULFATE
     Indication: Asthma
     Dosage: UNK
  2. ALBUTEROL SULFATE [Suspect]
     Active Substance: ALBUTEROL SULFATE
     Indication: Asthma
     Dosage: UNK
  3. VENTOLIN [Suspect]
     Active Substance: ALBUTEROL SULFATE
     Indication: Asthma
     Dosage: UNK

REACTIONS (7)
  - Presyncope [Unknown]
  - Hypotension [Unknown]
  - Drug ineffective [Unknown]
  - Incorrect dose administered by product [Unknown]
  - Wrong technique in device usage process [Unknown]
  - Underdose [Unknown]
  - Product delivery mechanism issue [Unknown]
